FAERS Safety Report 9428195 (Version 1)
Quarter: 2013Q3

REPORT INFORMATION
  Report Type: Report from Study
  Country: US (occurrence: US)
  Receive Date: 20130730
  Receipt Date: 20130730
  Transmission Date: 20140515
  Serious: No
  Sender: FDA-Public Use
  Company Number: US-ABBOTT-12P-163-0993536-00

PATIENT
  Sex: Female
  Weight: 79 kg

DRUGS (3)
  1. NIASPAN (COATED) [Suspect]
     Indication: LOW DENSITY LIPOPROTEIN INCREASED
     Dosage: AT BEDTIME
     Dates: start: 20120921
  2. ASA [Concomitant]
     Indication: PRODUCT USED FOR UNKNOWN INDICATION
     Dosage: 30 MINUTES BEFORE THE NIASPAN, WHEN SHE BREAKS TAB IN HALF
  3. SYNTHROID [Concomitant]
     Indication: PRODUCT USED FOR UNKNOWN INDICATION
     Dosage: 75 MG DAILY

REACTIONS (4)
  - Weight increased [Not Recovered/Not Resolved]
  - Insomnia [Unknown]
  - Flushing [Recovered/Resolved]
  - Decreased appetite [Not Recovered/Not Resolved]
